FAERS Safety Report 7178446-0 (Version None)
Quarter: 2010Q4

REPORT INFORMATION
  Report Type: 
  Country: None (occurrence: None)
  Receive Date: 20101220
  Receipt Date: 20101209
  Transmission Date: 20110411
  Serious: Yes (Other)
  Sender: FDA-Public Use
  Company Number: JP-WATSON-2010-15967

PATIENT
  Age: 86 Year
  Sex: Male

DRUGS (3)
  1. RAPAFLO [Suspect]
     Indication: DYSURIA
     Dosage: 4 MG, BID
     Route: 048
     Dates: start: 20101109, end: 20101122
  2. RAPAFLO [Suspect]
     Indication: BENIGN PROSTATIC HYPERPLASIA
  3. BICALUTAMIDE [Suspect]
     Indication: PRODUCT USED FOR UNKNOWN INDICATION
     Dosage: UNK
     Route: 065
     Dates: start: 20101012, end: 20101129

REACTIONS (4)
  - ALANINE AMINOTRANSFERASE INCREASED [None]
  - ASPARTATE AMINOTRANSFERASE INCREASED [None]
  - DECREASED APPETITE [None]
  - HEPATIC FUNCTION ABNORMAL [None]
